FAERS Safety Report 11110468 (Version 1)
Quarter: 2015Q2

REPORT INFORMATION
  Report Type: Spontaneous
  Country: US (occurrence: US)
  Receive Date: 20150513
  Receipt Date: 20150513
  Transmission Date: 20150821
  Serious: No
  Sender: FDA-Public Use
  Company Number: US-009507513-1505USA001633

PATIENT
  Sex: Male

DRUGS (9)
  1. MAXALT [Suspect]
     Active Substance: RIZATRIPTAN BENZOATE
     Indication: HEADACHE
     Dosage: 5 MG, AT MORE THAN THE RECOMMENDED MAXIMUM DOSE
     Route: 048
     Dates: start: 2014
  2. CORGARD [Concomitant]
     Active Substance: NADOLOL
  3. NORVASC [Concomitant]
     Active Substance: AMLODIPINE BESYLATE
  4. JANUVIA [Concomitant]
     Active Substance: SITAGLIPTIN PHOSPHATE
  5. NIASPAN [Concomitant]
     Active Substance: NIACIN
  6. TRAZODONE HYDROCHLORIDE. [Concomitant]
     Active Substance: TRAZODONE HYDROCHLORIDE
     Indication: SLEEP DISORDER
  7. MAXALT [Suspect]
     Active Substance: RIZATRIPTAN BENZOATE
     Dosage: 5 MG, FREQUENCY LESS THAN THE MAXIMUM RECOMMENDED DOSE
     Route: 048
  8. GLIPIZIDE. [Concomitant]
     Active Substance: GLIPIZIDE
     Dosage: UNK
  9. MAXALT [Suspect]
     Active Substance: RIZATRIPTAN BENZOATE
     Indication: MIGRAINE
     Dosage: 5 MG, UNK
     Route: 048
     Dates: start: 2011

REACTIONS (11)
  - Fatigue [Recovering/Resolving]
  - Nocturia [Recovering/Resolving]
  - Liver function test abnormal [Recovering/Resolving]
  - Incorrect dose administered [Unknown]
  - International normalised ratio increased [Recovering/Resolving]
  - Blood creatinine increased [Recovering/Resolving]
  - Headache [Recovering/Resolving]
  - Haematocrit decreased [Recovering/Resolving]
  - Incorrect dose administered [Unknown]
  - Biliary tract disorder [Recovering/Resolving]
  - Platelet count decreased [Recovering/Resolving]

NARRATIVE: CASE EVENT DATE: 2014
